FAERS Safety Report 5892192-2 (Version None)
Quarter: 2008Q3

REPORT INFORMATION
  Report Type: 
  Country: None (occurrence: None)
  Receive Date: 20080918
  Receipt Date: 20080904
  Transmission Date: 20090109
  Serious: Yes (Life-Threatening)
  Sender: FDA-Public Use
  Company Number: 2008S1016209

PATIENT
  Age: 62 Year
  Sex: Male

DRUGS (6)
  1. AZATHIOPRINE [Suspect]
     Indication: ANKYLOSING SPONDYLITIS
     Dosage: 50 MG;  DAILY, ORAL
     Route: 048
     Dates: start: 20080603, end: 20080604
  2. AZATHIOPRINE [Suspect]
     Indication: TEMPORAL ARTERITIS
     Dosage: 50 MG;  DAILY, ORAL
     Route: 048
     Dates: start: 20080603, end: 20080604
  3. BUPRENORPHINE HCL [Concomitant]
  4. CALCICHEW /00108001/ (CALCIUM CARBONATE) [Concomitant]
  5. ACETAMINOPHEN [Concomitant]
  6. PREDNISONE [Concomitant]

REACTIONS (1)
  - SUICIDAL IDEATION [None]
